FAERS Safety Report 23149972 (Version 2)
Quarter: 2023Q4

REPORT INFORMATION
  Report Type: Spontaneous
  Country: US (occurrence: US)
  Receive Date: 20231106
  Receipt Date: 20231218
  Transmission Date: 20240109
  Serious: No
  Sender: FDA-Public Use
  Company Number: US-PFIZER INC-202300086230

PATIENT
  Age: 81 Year
  Sex: Female
  Weight: 90.72 kg

DRUGS (3)
  1. IBRANCE [Suspect]
     Active Substance: PALBOCICLIB
     Indication: Breast cancer metastatic
     Dosage: 100 MG, CYCLIC, (100MG TABLET BY MOUTH ON DAYS 1-21 OF A 28-DAY CYCLE)
     Route: 048
     Dates: start: 20220817
  2. FASLODEX [Concomitant]
     Active Substance: FULVESTRANT
     Dosage: UNK
     Dates: start: 202207
  3. ZOMETA [Concomitant]
     Active Substance: ZOLEDRONIC ACID

REACTIONS (6)
  - Red blood cell abnormality [Unknown]
  - Macrocytosis [Unknown]
  - Poikilocytosis [Unknown]
  - Neoplasm progression [Unknown]
  - Platelet count decreased [Unknown]
  - Diarrhoea [Unknown]

NARRATIVE: CASE EVENT DATE: 20220921
